FAERS Safety Report 4290058-5 (Version None)
Quarter: 2004Q1

REPORT INFORMATION
  Report Type: 
  Country: None (occurrence: None)
  Receive Date: 20040209
  Receipt Date: 20040122
  Transmission Date: 20041129
  Serious: Yes (Disabling)
  Sender: FDA-Public Use
  Company Number: 204318

PATIENT
  Age: 54 Year
  Sex: Male
  Weight: 82.5 kg

DRUGS (7)
  1. XOLAIR [Suspect]
     Indication: ASTHMA
     Dosage: 300 MG, Q4W, SUBCUTANEOUS
     Route: 058
     Dates: start: 20031113, end: 20040119
  2. ALBUTEROL (ALBUTEROL SULFATE, ALBUTEROL) [Concomitant]
  3. FLOVENT [Concomitant]
  4. SEREVENT [Concomitant]
  5. COMBIVENT (IPRATROPIUM BROMIDE, ALBUTEROL, ALBUTEROL SULFATE) [Concomitant]
  6. SINGULAIR [Concomitant]
  7. NASONEX [Concomitant]

REACTIONS (3)
  - HEADACHE [None]
  - NAUSEA [None]
  - VOMITING [None]
